FAERS Safety Report 8304685-9 (Version None)
Quarter: 2012Q2

REPORT INFORMATION
  Report Type: 
  Country: None (occurrence: None)
  Receive Date: 20120423
  Receipt Date: 20120413
  Transmission Date: 20120825
  Serious: Yes (Hospitalization, Other)
  Sender: FDA-Public Use
  Company Number: US-JNJFOC-20120212149

PATIENT
  Sex: Male
  Weight: 115.21 kg

DRUGS (8)
  1. LISINOPRIL [Concomitant]
  2. RANITIDINE [Concomitant]
  3. XARELTO [Suspect]
     Indication: KNEE OPERATION
     Route: 048
     Dates: start: 20120122, end: 20120204
  4. VITAMIN D [Concomitant]
  5. ASCORBIC ACID [Concomitant]
  6. RED WINE EXTRACT [Concomitant]
  7. AMLODIPINE [Concomitant]
  8. XARELTO [Suspect]
     Indication: THROMBOSIS PROPHYLAXIS
     Route: 048
     Dates: start: 20120122, end: 20120204

REACTIONS (2)
  - DRUG INEFFECTIVE [None]
  - DEEP VEIN THROMBOSIS [None]
